FAERS Safety Report 6742717-X (Version None)
Quarter: 2010Q2

REPORT INFORMATION
  Report Type: 
  Country: None (occurrence: None)
  Receive Date: 20100526
  Receipt Date: 20091130
  Transmission Date: 20101027
  Serious: No
  Sender: FDA-Public Use
  Company Number: US-ABBOTT-09P-163-0611768-00

PATIENT
  Sex: Male
  Weight: 82.628 kg

DRUGS (10)
  1. ZEMPLAR TORRERX9 [Suspect]
     Indication: KIDNEY ENLARGEMENT
     Dates: start: 20091120
  2. ZEMPLAR TORRERX9 [Suspect]
     Indication: HYPERPARATHYROIDISM
  3. TORSEMIDE [Concomitant]
     Indication: KIDNEY ENLARGEMENT
     Dates: start: 20091123
  4. SPIRONOLACTONE [Concomitant]
     Indication: KIDNEY ENLARGEMENT
     Dates: start: 20091123
  5. POTASSIUM [Concomitant]
     Indication: DRUG USE FOR UNKNOWN INDICATION
  6. ALLOPURINOL [Concomitant]
     Indication: DRUG USE FOR UNKNOWN INDICATION
  7. METOPROLOL [Concomitant]
     Indication: DRUG USE FOR UNKNOWN INDICATION
  8. LISINOPRIL [Concomitant]
     Indication: DRUG USE FOR UNKNOWN INDICATION
  9. PRAVASTATIN [Concomitant]
     Indication: DRUG USE FOR UNKNOWN INDICATION
  10. WARFARIN SODIUM [Concomitant]
     Indication: DRUG USE FOR UNKNOWN INDICATION

REACTIONS (2)
  - INSOMNIA [None]
  - MUSCLE SPASMS [None]
